FAERS Safety Report 14580660 (Version 1)
Quarter: 2018Q1

REPORT INFORMATION
  Report Type: Spontaneous
  Country: UY (occurrence: UY)
  Receive Date: 20180228
  Receipt Date: 20180228
  Transmission Date: 20180509
  Serious: Yes (Death, Other)
  Sender: FDA-Public Use
  Company Number: UY-CIPLA LTD.-2018UY06952

PATIENT

DRUGS (7)
  1. PAMIDRONATE DISODIUM. [Suspect]
     Active Substance: PAMIDRONATE DISODIUM
     Indication: BONE DENSITY DECREASED
     Dosage: 90 MG, EVERY 3 MONTHS
     Route: 042
  2. VITAMIN D                          /00107901/ [Suspect]
     Active Substance: ERGOCALCIFEROL
     Indication: BONE DENSITY DECREASED
     Dosage: 90 000 U EVERY 3 MONTHS
     Route: 065
  3. STRONTIUM RANELATE [Suspect]
     Active Substance: STRONTIUM RANELATE
     Indication: PRODUCT USED FOR UNKNOWN INDICATION
     Dosage: 2 G, QD
     Route: 048
  4. CALCIUM [Suspect]
     Active Substance: CALCIUM
     Indication: BONE DENSITY DECREASED
     Dosage: UNK
     Route: 065
  5. METOPROLOL. [Suspect]
     Active Substance: METOPROLOL
     Indication: HYPERTENSION
     Dosage: 50 MG, QD
     Route: 065
  6. RAMIPRIL. [Suspect]
     Active Substance: RAMIPRIL
     Indication: HYPERTENSION
     Dosage: 5 MG, QD
     Route: 065
  7. INDAPAMIDE. [Suspect]
     Active Substance: INDAPAMIDE
     Indication: HYPERTENSION
     Dosage: 1.5 MG, QD
     Route: 065

REACTIONS (4)
  - Bone density decreased [Unknown]
  - Sepsis [Fatal]
  - Cushing^s syndrome [Not Recovered/Not Resolved]
  - Haemorrhage [Unknown]
